FAERS Safety Report 13635645 (Version 1)
Quarter: 2017Q2

REPORT INFORMATION
  Report Type: Spontaneous
  Country: US (occurrence: US)
  Receive Date: 20170531
  Receipt Date: 20170531
  Transmission Date: 20170830
  Serious: No
  Sender: FDA-Public Use
  Company Number: US-ASTELLAS-1733530

PATIENT
  Sex: Male

DRUGS (2)
  1. TARCEVA [Suspect]
     Active Substance: ERLOTINIB HYDROCHLORIDE
     Indication: SALIVARY GLAND CANCER
     Route: 048
     Dates: start: 20160309
  2. TARCEVA [Suspect]
     Active Substance: ERLOTINIB HYDROCHLORIDE
     Route: 048
     Dates: start: 20160315

REACTIONS (8)
  - Eyelash hyperpigmentation [Unknown]
  - Fatigue [Unknown]
  - Oropharyngeal pain [Unknown]
  - Burning sensation [Unknown]
  - Cough [Unknown]
  - Rash pruritic [Unknown]
  - Rash [Unknown]
  - Growth of eyelashes [Unknown]
